FAERS Safety Report 13334112 (Version 1)
Quarter: 2017Q1

REPORT INFORMATION
  Report Type: Spontaneous
  Country: US (occurrence: US)
  Receive Date: 20170314
  Receipt Date: 20170314
  Transmission Date: 20170428
  Serious: No
  Sender: FDA-Public Use
  Company Number: US-DEPOMED, INC.-US-2016DEP011854

PATIENT

DRUGS (1)
  1. GRALISE [Suspect]
     Active Substance: GABAPENTIN
     Indication: PRODUCT USED FOR UNKNOWN INDICATION
     Dosage: 1800 MG, QD
     Route: 048
     Dates: start: 20160128

REACTIONS (7)
  - Restless legs syndrome [Unknown]
  - Dizziness [Unknown]
  - Weight decreased [Unknown]
  - Urinary tract infection [Unknown]
  - Kidney infection [Unknown]
  - Diarrhoea [Unknown]
  - Muscle spasms [Unknown]
